FAERS Safety Report 8957385 (Version 1)
Quarter: 2012Q4

REPORT INFORMATION
  Report Type: 
  Country: BR (occurrence: BR)
  Receive Date: 20121211
  Receipt Date: 20121211
  Transmission Date: 20130627
  Serious: Yes (Other)
  Sender: FDA-Public Use
  Company Number: PHHY2012BR112065

PATIENT
  Age: 65 Year
  Sex: Female

DRUGS (6)
  1. DIOVAN AMLO FIX [Suspect]
     Indication: HYPERTENSION
     Dosage: 1 DF (80 mg vals + 5 mg amlo), a day
     Route: 048
  2. DIOVAN AMLO FIX [Suspect]
     Dosage: 1 DF (80 mg vals + 5 mg amlo), every other day
     Route: 048
  3. RIVOTRIL [Concomitant]
  4. TIBOLONA [Concomitant]
     Indication: MENOPAUSE
     Dosage: 1 DF, a day
     Route: 048
  5. COLECALCIFEROL [Concomitant]
     Indication: BONE DISORDER
  6. OMEGA 3 [Concomitant]

REACTIONS (5)
  - Cholelithiasis [Recovered/Resolved]
  - Pain [Recovered/Resolved]
  - Blood pressure fluctuation [Unknown]
  - Headache [Recovered/Resolved]
  - Malaise [Unknown]
